FAERS Safety Report 4817492-6 (Version None)
Quarter: 2005Q4

REPORT INFORMATION
  Report Type: 
  Country: None (occurrence: None)
  Receive Date: 20051031
  Receipt Date: 20051019
  Transmission Date: 20060501
  Serious: Yes (Hospitalization)
  Sender: FDA-Public Use
  Company Number: 2005145449

PATIENT
  Sex: Male

DRUGS (3)
  1. ATARAX [Suspect]
     Indication: ILL-DEFINED DISORDER
     Dosage: PLACENTAL
     Route: 064
  2. FLUOXETINE [Suspect]
     Indication: ILL-DEFINED DISORDER
     Dosage: PLACENTAL
     Route: 064
  3. DIAZEPAM [Suspect]
     Indication: ILL-DEFINED DISORDER
     Dosage: PLACENTAL
     Route: 064

REACTIONS (4)
  - DRUG EXPOSURE DURING PREGNANCY [None]
  - PREMATURE BABY [None]
  - SOMNOLENCE NEONATAL [None]
  - TREMOR NEONATAL [None]
